FAERS Safety Report 13338925 (Version 5)
Quarter: 2017Q2

REPORT INFORMATION
  Report Type: Report from Study
  Country: JP (occurrence: JP)
  Receive Date: 20170315
  Receipt Date: 20170421
  Transmission Date: 20170830
  Serious: Yes (Hospitalization)
  Sender: FDA-Public Use
  Company Number: PHJP2017JP008748

PATIENT
  Age: 44 Year
  Sex: Male
  Weight: 79.1 kg

DRUGS (34)
  1. SEIBULE [Concomitant]
     Active Substance: MIGLITOL
     Indication: DIABETES MELLITUS
     Dosage: 50 MG, QD
     Route: 048
     Dates: start: 20161031
  2. LOTRIGA [Concomitant]
     Active Substance: OMEGA-3-ACID ETHYL ESTERS
     Indication: HYPERTRIGLYCERIDAEMIA
     Dosage: 2 G, QD
     Route: 048
     Dates: start: 20161226
  3. TRYPTANOL [Concomitant]
     Active Substance: AMITRIPTYLINE
     Indication: PERSISTENT DEPRESSIVE DISORDER
     Dosage: 25 MG, BID
     Route: 048
     Dates: start: 20160209
  4. HYALEIN [Concomitant]
     Active Substance: HYALURONATE SODIUM
     Indication: SEASONAL ALLERGY
     Dosage: UNK
     Route: 047
     Dates: start: 20160614
  5. SIGNIFOR LAR [Concomitant]
     Active Substance: PASIREOTIDE
     Indication: ACROMEGALY
     Dosage: UNK
     Route: 030
     Dates: start: 20170410
  6. REBAMIPIDE [Concomitant]
     Active Substance: REBAMIPIDE
     Indication: CHRONIC GASTRITIS
     Dosage: 100 MG, TID
     Route: 048
     Dates: start: 20140516
  7. NESINA [Concomitant]
     Active Substance: ALOGLIPTIN BENZOATE
     Indication: DIABETES MELLITUS
     Dosage: 25 MG, QD
     Route: 048
     Dates: start: 20161226
  8. SUGLAT [Concomitant]
     Active Substance: IPRAGLIFLOZIN L-PROLINE
     Indication: DIABETES MELLITUS
     Dosage: 50 MG, UNK
     Route: 048
     Dates: start: 20150224
  9. ABILIFY [Concomitant]
     Active Substance: ARIPIPRAZOLE
     Dosage: 6 MG, UNK
     Route: 048
     Dates: start: 20170303
  10. HYALURON [Concomitant]
     Indication: OSTEOARTHRITIS
     Dosage: UNK, QW
     Route: 014
     Dates: start: 20160721
  11. LIVOSTIN [Concomitant]
     Active Substance: LEVOCABASTINE HYDROCHLORIDE
     Indication: SEASONAL ALLERGY
     Dosage: UNK
     Route: 047
     Dates: start: 20160614
  12. FLUMETHOLON [Concomitant]
     Active Substance: FLUOROMETHOLONE
     Indication: SEASONAL ALLERGY
     Dosage: UNK
     Route: 047
     Dates: start: 20170303
  13. CILNIDIPINE [Concomitant]
     Active Substance: CILNIDIPINE
     Indication: HYPERTENSION
     Dosage: 10 MG, QD
     Route: 048
  14. ZOTEPINE [Concomitant]
     Active Substance: ZOTEPINE
     Indication: PERSISTENT DEPRESSIVE DISORDER
     Dosage: 25 MG, QD
     Route: 048
     Dates: start: 20150612
  15. PIOGLITAZONE. [Concomitant]
     Active Substance: PIOGLITAZONE
     Indication: DIABETES MELLITUS
     Dosage: 15 MG, QD
     Route: 048
     Dates: start: 20161226
  16. LITHIUM CARBONATE. [Concomitant]
     Active Substance: LITHIUM CARBONATE
     Dosage: 100 MG, UNK
     Route: 048
     Dates: start: 20170303
  17. ATORVASTATIN [Concomitant]
     Active Substance: ATORVASTATIN
     Indication: DYSLIPIDAEMIA
     Dosage: 5 MG, QD
     Route: 048
  18. BISOPROLOL FUMARATE. [Concomitant]
     Active Substance: BISOPROLOL FUMARATE
     Indication: HYPERTENSION
     Dosage: 2.5 MG, QD
     Route: 048
     Dates: start: 20170123
  19. METFORMIN [Concomitant]
     Active Substance: METFORMIN HYDROCHLORIDE
     Indication: DIABETES MELLITUS
     Dosage: 500 MG, TID
     Route: 048
     Dates: start: 20170123
  20. ROZEREM [Concomitant]
     Active Substance: RAMELTEON
     Indication: PERSISTENT DEPRESSIVE DISORDER
     Dosage: 8 MG, QD
     Route: 048
     Dates: start: 20151030, end: 20160414
  21. GLIMEPIRIDE. [Concomitant]
     Active Substance: GLIMEPIRIDE
     Indication: DIABETES MELLITUS
     Dosage: 0.5 MG, QD
     Route: 048
     Dates: start: 20161226
  22. LAMICTAL [Concomitant]
     Active Substance: LAMOTRIGINE
     Indication: PERSISTENT DEPRESSIVE DISORDER
     Dosage: 200 MG, BID
     Route: 048
     Dates: start: 20170106
  23. BIO-THREE [Concomitant]
     Active Substance: HERBALS
     Indication: DIARRHOEA
     Dosage: 1 DF, TID
     Route: 048
     Dates: start: 20160808
  24. TRAMCET [Concomitant]
     Active Substance: ACETAMINOPHEN\TRAMADOL
     Indication: OSTEOARTHRITIS
     Dosage: 4 DF, QD
     Route: 048
     Dates: start: 20160826
  25. EPALRESTAT [Concomitant]
     Active Substance: EPALRESTAT
     Indication: DIABETES MELLITUS
     Dosage: 50 MG, TID
     Route: 048
     Dates: start: 20150406
  26. NOVAMIN (PROCHLORPERAZINE) [Concomitant]
     Active Substance: PROCHLORPERAZINE
     Indication: OSTEOARTHRITIS
     Dosage: 20 MG, QD
     Route: 048
     Dates: start: 20160902
  27. ESFLURBIPROFEN [Concomitant]
     Indication: OSTEOARTHRITIS
     Dosage: UNK UNK, QD
     Route: 062
     Dates: start: 20160805
  28. SIGNIFOR LAR [Suspect]
     Active Substance: PASIREOTIDE
     Indication: ACROMEGALY
     Dosage: 20 MG, 4W
     Route: 030
     Dates: start: 20140423, end: 20140616
  29. SIGNIFOR LAR [Suspect]
     Active Substance: PASIREOTIDE
     Dosage: 40 MG, 4W
     Route: 030
     Dates: start: 20140718, end: 20170220
  30. NEXIUM [Concomitant]
     Active Substance: ESOMEPRAZOLE MAGNESIUM
     Indication: CHRONIC GASTRITIS
     Dosage: 20 MG, QD
     Route: 048
     Dates: start: 20161006
  31. XYZAL [Concomitant]
     Active Substance: LEVOCETIRIZINE DIHYDROCHLORIDE
     Indication: SEASONAL ALLERGY
     Dosage: 5 MG, QD
     Route: 048
     Dates: start: 20170220, end: 20170312
  32. ALLERMIST [Concomitant]
     Active Substance: FLUTICASONE FUROATE
     Indication: SEASONAL ALLERGY
     Dosage: 27.5 UG, QD
     Route: 045
     Dates: start: 20161226
  33. LITHIUM CARBONATE. [Concomitant]
     Active Substance: LITHIUM CARBONATE
     Indication: PERSISTENT DEPRESSIVE DISORDER
     Dosage: 200 MG, QD
     Route: 048
     Dates: start: 20170217, end: 20170302
  34. ABILIFY [Concomitant]
     Active Substance: ARIPIPRAZOLE
     Indication: PERSISTENT DEPRESSIVE DISORDER
     Dosage: 3 MG, QD
     Route: 048
     Dates: start: 20170217, end: 20170302

REACTIONS (1)
  - Persistent depressive disorder [Recovered/Resolved]

NARRATIVE: CASE EVENT DATE: 20170303
